FAERS Safety Report 4934734-7 (Version None)
Quarter: 2006Q1

REPORT INFORMATION
  Report Type: 
  Country: None (occurrence: None)
  Receive Date: 20060307
  Receipt Date: 20050317
  Transmission Date: 20060701
  Serious: Yes (Hospitalization)
  Sender: FDA-Public Use
  Company Number: US-MERCK-0503USA03406

PATIENT
  Age: 65 Year
  Sex: Female
  Weight: 66 kg

DRUGS (49)
  1. VIOXX [Suspect]
     Indication: ARTHRITIS
     Route: 048
     Dates: start: 20020101, end: 20040101
  2. VIOXX [Suspect]
     Route: 048
     Dates: start: 20020101, end: 20040101
  3. VIOXX [Suspect]
     Route: 048
     Dates: start: 20020101, end: 20040101
  4. VIOXX [Suspect]
     Route: 048
     Dates: start: 20020101, end: 20040101
  5. ADVIL [Concomitant]
     Route: 065
  6. TYLENOL W/ CODEINE [Concomitant]
     Route: 065
  7. NORVASC [Concomitant]
     Route: 065
  8. SECTRAL [Concomitant]
     Route: 065
  9. ECOTRIN [Concomitant]
     Route: 065
  10. ASPIRIN [Concomitant]
     Route: 065
  11. CELEBREX [Concomitant]
     Route: 065
  12. ULTRAM [Concomitant]
     Route: 065
  13. HYDROCHLOROTHIAZIDE [Concomitant]
     Route: 065
  14. PLAVIX [Concomitant]
     Route: 065
  15. PLETAL [Concomitant]
     Route: 065
  16. TRENTAL [Concomitant]
     Route: 065
  17. NEURONTIN [Concomitant]
     Route: 065
  18. LOTENSIN [Concomitant]
     Route: 065
  19. ACEBUTOLOL [Concomitant]
     Route: 065
  20. LIPITOR [Concomitant]
     Route: 065
  21. AMIODARONE [Concomitant]
     Route: 065
  22. SINEMET [Concomitant]
     Route: 065
  23. VASOTEC RPD [Concomitant]
     Route: 048
  24. BACLOFEN [Concomitant]
     Route: 065
  25. COUMADIN [Concomitant]
     Route: 065
  26. XANAX [Concomitant]
     Route: 065
  27. LEVAQUIN [Concomitant]
     Route: 065
  28. MECLIZINE [Concomitant]
     Route: 065
  29. COLACE [Concomitant]
     Route: 065
  30. BENAZEPRIL HYDROCHLORIDE [Concomitant]
     Route: 065
  31. CARBIDOPA AND LEVODOPA [Concomitant]
     Route: 065
  32. TAMSULOSIN HYDROCHLORIDE [Concomitant]
     Route: 065
  33. ANTIVERT [Concomitant]
     Route: 065
  34. KLONOPIN [Concomitant]
     Route: 065
  35. CORDARONE [Concomitant]
     Route: 065
  36. NITROGLYCERIN [Concomitant]
     Route: 065
  37. DECADRON [Concomitant]
     Route: 065
  38. LASIX [Concomitant]
     Route: 065
  39. TENORMIN [Concomitant]
     Route: 065
  40. ATIVAN [Concomitant]
     Route: 065
  41. URECHOLINE [Concomitant]
     Route: 048
  42. SLOW-K [Concomitant]
     Route: 065
  43. AMBIEN [Concomitant]
     Route: 065
  44. POTASSIUM (UNSPECIFIED) [Concomitant]
     Route: 065
  45. ALDACTONE [Concomitant]
     Route: 065
  46. COMBIVENT [Concomitant]
     Route: 065
  47. MICRONASE [Concomitant]
     Route: 065
  48. ADVAIR DISKUS 100/50 [Concomitant]
     Route: 065
  49. PACERONE [Concomitant]
     Route: 065

REACTIONS (46)
  - ABDOMINAL DISCOMFORT [None]
  - ACUTE MYOCARDIAL INFARCTION [None]
  - ANXIETY [None]
  - ARRHYTHMIA [None]
  - ASTHENIA [None]
  - ATRIAL FIBRILLATION [None]
  - AUTONOMIC NERVOUS SYSTEM IMBALANCE [None]
  - BALANCE DISORDER [None]
  - CARDIAC FAILURE CONGESTIVE [None]
  - CARDIAC MURMUR [None]
  - CEREBROVASCULAR ACCIDENT [None]
  - CEREBROVASCULAR INSUFFICIENCY [None]
  - CHEST PAIN [None]
  - CHRONIC OBSTRUCTIVE PULMONARY DISEASE [None]
  - COORDINATION ABNORMAL [None]
  - CORONARY ARTERY DISEASE [None]
  - DIABETES MELLITUS [None]
  - DIZZINESS [None]
  - DRUG HYPERSENSITIVITY [None]
  - DYSLOGIA [None]
  - DYSPHAGIA [None]
  - DYSPNOEA [None]
  - FALL [None]
  - HEADACHE [None]
  - HYPERLIPIDAEMIA [None]
  - HYPOAESTHESIA [None]
  - HYPOPHONESIS [None]
  - INTRACRANIAL ANEURYSM [None]
  - OEDEMA PERIPHERAL [None]
  - OVERDOSE [None]
  - PALPITATIONS [None]
  - PERIPHERAL VASCULAR DISORDER [None]
  - PLEURAL EFFUSION [None]
  - PNEUMONIA [None]
  - POSTPERICARDIOTOMY SYNDROME [None]
  - SLEEP APNOEA SYNDROME [None]
  - SYNCOPE [None]
  - TACHYCARDIA [None]
  - TRANSIENT ISCHAEMIC ATTACK [None]
  - URINARY RETENTION [None]
  - URINARY TRACT INFECTION [None]
  - VERTEBRAL ARTERY STENOSIS [None]
  - VERTEBROBASILAR INSUFFICIENCY [None]
  - VERTIGO [None]
  - VOMITING [None]
  - WALLENBERG SYNDROME [None]
